FAERS Safety Report 6267368-5 (Version None)
Quarter: 2009Q3

REPORT INFORMATION
  Report Type: 
  Country: None (occurrence: None)
  Receive Date: 20090710
  Receipt Date: 20090703
  Transmission Date: 20100115
  Serious: Yes (Other)
  Sender: FDA-Public Use
  Company Number: 2009JP004047

PATIENT
  Age: 61 Year
  Sex: Female

DRUGS (2)
  1. VESICARE [Suspect]
     Dosage: 5 MG, BID, ORAL;  5 MG,  /D, ORAL
     Route: 048
     Dates: start: 20060601, end: 20090601
  2. VESICARE [Suspect]
     Dosage: 5 MG, BID, ORAL;  5 MG,  /D, ORAL
     Route: 048
     Dates: start: 20090601

REACTIONS (1)
  - HAEMATURIA [None]
